FAERS Safety Report 4642120-2 (Version None)
Quarter: 2005Q2

REPORT INFORMATION
  Report Type: 
  Country: None (occurrence: None)
  Receive Date: 20050421
  Receipt Date: 20050409
  Transmission Date: 20051028
  Serious: Yes (Other)
  Sender: FDA-Public Use
  Company Number: 2005057261

PATIENT
  Age: 11 Year
  Sex: Female
  Weight: 49.8957 kg

DRUGS (3)
  1. CHILDREN'S PEDIACARE NIGHTREST COUGH AND COLD (PSEUDOEPHEDRINE, DEXTRO [Suspect]
     Indication: COUGH
     Dosage: 2 TEASPOONS EACH NIGHT, ORAL
     Route: 048
     Dates: start: 20050405, end: 20050409
  2. DESLORATADINE (DESLORATADINE) [Concomitant]
  3. LANSOPRAZOLE [Concomitant]

REACTIONS (9)
  - ASTHENIA [None]
  - CHEST PAIN [None]
  - DIZZINESS [None]
  - EAR INFECTION [None]
  - FEELING JITTERY [None]
  - NERVOUSNESS [None]
  - PALPITATIONS [None]
  - PANIC ATTACK [None]
  - TREMOR [None]
